FAERS Safety Report 4777313-7 (Version None)
Quarter: 2005Q3

REPORT INFORMATION
  Report Type: 
  Country: None (occurrence: None)
  Receive Date: 20050922
  Receipt Date: 20050922
  Transmission Date: 20060218
  Serious: Yes (Hospitalization, Other)
  Sender: FDA-Public Use
  Company Number: None

PATIENT
  Sex: Male

DRUGS (13)
  1. ZETIA [Suspect]
     Indication: HYPERLIPIDAEMIA
     Dosage: 10 MG    DAILY   PO
     Route: 048
  2. CLOPIDOGREL [Concomitant]
  3. FUROSEMIDE [Concomitant]
  4. ISOSORBIDE MONONITRATE [Concomitant]
  5. LISINOPRIL [Concomitant]
  6. POTASSIUM CHLORIDE [Concomitant]
  7. LANTUS [Concomitant]
  8. REPAGLINIDE [Concomitant]
  9. MODAFINIL [Concomitant]
  10. DULOXETINE [Concomitant]
  11. ANDROGEL [Concomitant]
  12. ASPIRIN [Concomitant]
  13. NOVOLOG [Concomitant]

REACTIONS (1)
  - ASTHENIA [None]
